FAERS Safety Report 20691898 (Version 4)
Quarter: 2022Q2

REPORT INFORMATION
  Report Type: Spontaneous
  Country: JP (occurrence: JP)
  Receive Date: 20220408
  Receipt Date: 20220607
  Transmission Date: 20220721
  Serious: Yes (Death, Hospitalization, Other)
  Sender: FDA-Public Use
  Company Number: JP-MSD-M2022-13923

PATIENT
  Age: 76 Year
  Sex: Male
  Weight: 71 kg

DRUGS (4)
  1. KEYTRUDA [Suspect]
     Active Substance: PEMBROLIZUMAB
     Indication: Non-small cell lung cancer stage IV
     Dosage: 200 MILLIGRAM, EVERY 4 WEEKS
     Route: 041
     Dates: start: 20210805, end: 20211223
  2. PEMETREXED DISODIUM [Suspect]
     Active Substance: PEMETREXED DISODIUM
     Indication: Non-small cell lung cancer stage IV
     Dosage: 940 MILLIGRAM, EVERY 4 WEEKS
     Route: 041
     Dates: start: 20210805, end: 20211223
  3. CARBOPLATIN [Suspect]
     Active Substance: CARBOPLATIN
     Indication: Non-small cell lung cancer stage IV
     Dosage: 480 MILLIGRAM, EVERY 4 WEEKS
     Route: 041
     Dates: start: 20210805, end: 20211027
  4. DOCETAXEL [Suspect]
     Active Substance: DOCETAXEL
     Indication: Non-small cell lung cancer stage IV
     Dosage: 110 MILLIGRAM, QD
     Route: 041
     Dates: start: 20220203, end: 20220203

REACTIONS (10)
  - Acute respiratory failure [Fatal]
  - Pulmonary toxicity [Fatal]
  - Acute respiratory distress syndrome [Fatal]
  - Pneumonia bacterial [Fatal]
  - Pneumocystis jirovecii pneumonia [Fatal]
  - Malignant neoplasm progression [Unknown]
  - Complicated appendicitis [Recovering/Resolving]
  - Thrombocytopenia [Recovered/Resolved]
  - Neutropenia [Recovered/Resolved]
  - Off label use [Unknown]

NARRATIVE: CASE EVENT DATE: 20210101
